FAERS Safety Report 7924507-5 (Version None)
Quarter: 2011Q4

REPORT INFORMATION
  Report Type: 
  Country: None (occurrence: None)
  Receive Date: 20111117
  Receipt Date: 20110323
  Transmission Date: 20120403
  Serious: No
  Sender: FDA-Public Use
  Company Number: US-AMGEN-USASP2011015755

PATIENT
  Age: 38 Year
  Sex: Female

DRUGS (1)
  1. ENBREL [Suspect]
     Indication: PSORIATIC ARTHROPATHY
     Dosage: 50 MG, QWK
     Dates: start: 20110308, end: 20110405

REACTIONS (12)
  - INJECTION SITE PAIN [None]
  - INJECTION SITE PRURITUS [None]
  - PAIN [None]
  - NECK PAIN [None]
  - PAIN IN EXTREMITY [None]
  - INJECTION SITE URTICARIA [None]
  - PSORIASIS [None]
  - MUSCULOSKELETAL PAIN [None]
  - INJECTION SITE REACTION [None]
  - INJECTION SITE ERYTHEMA [None]
  - ARTHRALGIA [None]
  - MASS [None]
